FAERS Safety Report 25177392 (Version 1)
Quarter: 2025Q2

REPORT INFORMATION
  Report Type: Report from Study
  Country: US (occurrence: US)
  Receive Date: 20250409
  Receipt Date: 20250409
  Transmission Date: 20250716
  Serious: Yes (Other)
  Sender: ABBVIE
  Company Number: US-ABBVIE-6116339

PATIENT
  Age: 64 Year
  Sex: Female
  Weight: 82 kg

DRUGS (2)
  1. ARMOUR THYROID [Suspect]
     Active Substance: THYROID, PORCINE
     Indication: Hypothyroidism
     Dosage: FORM STRENGTH: 90 MILIGRAM
     Route: 048
     Dates: start: 2010, end: 20241215
  2. ARMOUR THYROID [Suspect]
     Active Substance: THYROID, PORCINE
     Indication: Hypothyroidism
     Dosage: FORM STRENGTH: 90 MILIGRAM
     Route: 048
     Dates: start: 20250130

REACTIONS (26)
  - Osteonecrosis [Recovered/Resolved]
  - Neck pain [Not Recovered/Not Resolved]
  - Malaise [Not Recovered/Not Resolved]
  - Mast cell activation syndrome [Not Recovered/Not Resolved]
  - Migraine [Not Recovered/Not Resolved]
  - Ophthalmic migraine [Recovered/Resolved]
  - Diarrhoea [Not Recovered/Not Resolved]
  - Headache [Not Recovered/Not Resolved]
  - Trigeminal neuralgia [Not Recovered/Not Resolved]
  - Tooth fracture [Not Recovered/Not Resolved]
  - Cystitis interstitial [Not Recovered/Not Resolved]
  - Hypertension [Recovered/Resolved]
  - Hypotension [Recovered/Resolved]
  - Product dispensing error [Unknown]
  - Temporomandibular pain and dysfunction syndrome [Recovered/Resolved]
  - Gait inability [Recovered/Resolved]
  - Multiple allergies [Not Recovered/Not Resolved]
  - Autoimmune thyroiditis [Recovered/Resolved]
  - Oropharyngeal pain [Not Recovered/Not Resolved]
  - Dyspnoea [Not Recovered/Not Resolved]
  - Poor quality product administered [Recovered/Resolved]
  - Constipation [Not Recovered/Not Resolved]
  - Eye pain [Recovered/Resolved]
  - Rash [Not Recovered/Not Resolved]
  - Ophthalmic migraine [Not Recovered/Not Resolved]
  - Product contamination microbial [Recovered/Resolved]

NARRATIVE: CASE EVENT DATE: 20200101
